FAERS Safety Report 24767361 (Version 1)
Quarter: 2024Q4

REPORT INFORMATION
  Report Type: Spontaneous
  Country: US (occurrence: None)
  Receive Date: 20241220
  Receipt Date: 20241220
  Transmission Date: 20250115
  Serious: Yes (Other)
  Sender: Public
  Company Number: None

PATIENT
  Age: 55 Year
  Sex: Male
  Weight: 74.25 kg

DRUGS (1)
  1. TASIGNA [Suspect]
     Active Substance: NILOTINIB
     Dosage: 300 MG TWICE A DAY ORAL ?
     Route: 048
     Dates: start: 20240425

REACTIONS (2)
  - Skin burning sensation [None]
  - Adverse drug reaction [None]

NARRATIVE: CASE EVENT DATE: 20241220
